FAERS Safety Report 6978119-0 (Version None)
Quarter: 2010Q3

REPORT INFORMATION
  Report Type: 
  Country: None (occurrence: None)
  Receive Date: 20100913
  Receipt Date: 20100902
  Transmission Date: 20110219
  Serious: Yes (Other)
  Sender: FDA-Public Use
  Company Number: US-TYCO HEALTHCARE/MALLINCKRODT-T201001931

PATIENT
  Sex: Female

DRUGS (4)
  1. OPTIMARK [Suspect]
     Indication: NUCLEAR MAGNETIC RESONANCE IMAGING
     Dosage: 20 ML, SINGLE
     Route: 042
     Dates: start: 20050831, end: 20050831
  2. OMNISCAN [Suspect]
     Indication: NUCLEAR MAGNETIC RESONANCE IMAGING
     Dosage: 20 ML, SINGLE
     Dates: start: 20050628, end: 20050628
  3. CONTRAST MEDIA [Suspect]
     Indication: NUCLEAR MAGNETIC RESONANCE IMAGING
     Dosage: UNK
     Dates: start: 20040225, end: 20040225
  4. CONTRAST MEDIA [Suspect]
     Dosage: UNK
     Dates: start: 20041202, end: 20041202

REACTIONS (10)
  - ABDOMINAL PAIN LOWER [None]
  - ARTERIOSCLEROSIS [None]
  - BACK PAIN [None]
  - CEREBROVASCULAR ACCIDENT [None]
  - CONVULSION [None]
  - NEPHROGENIC SYSTEMIC FIBROSIS [None]
  - OFF LABEL USE [None]
  - SEPSIS [None]
  - SINUS DISORDER [None]
  - VENOUS STENOSIS [None]
